FAERS Safety Report 4885388-X (Version None)
Quarter: 2005Q4

REPORT INFORMATION
  Report Type: 
  Country: None (occurrence: None)
  Receive Date: 20051222
  Receipt Date: 20050921
  Transmission Date: 20060501
  Serious: No
  Sender: FDA-Public Use
  Company Number: SP00505

PATIENT
  Age: 59 Year
  Sex: Female

DRUGS (11)
  1. XIFAXAN [Suspect]
     Indication: CROHN'S DISEASE
     Dosage: 200MG/QD, ORAL
     Route: 048
     Dates: start: 20050907
  2. PREDNISONE [Concomitant]
  3. ATENOLOL [Concomitant]
  4. PREVACID [Concomitant]
  5. KLONOPIN [Concomitant]
  6. HORMONE REPLACEMENT THERAPY [Concomitant]
  7. CALCIUM WITH VITAMIN D [Concomitant]
  8. ALBUETEROL [Concomitant]
  9. SPIRIVA [Concomitant]
  10. DOXEPIN [Concomitant]
  11. VALIUM [Concomitant]

REACTIONS (3)
  - ASTHENIA [None]
  - CONDITION AGGRAVATED [None]
  - DIARRHOEA [None]
